FAERS Safety Report 25652351 (Version 1)
Quarter: 2025Q3

REPORT INFORMATION
  Report Type: Spontaneous
  Country: US (occurrence: US)
  Receive Date: 20250807
  Receipt Date: 20250807
  Transmission Date: 20251021
  Serious: No
  Sender: CIPLA
  Company Number: US-CIPLA LTD.-2025US09568

PATIENT

DRUGS (1)
  1. ZONISAMIDE [Suspect]
     Active Substance: ZONISAMIDE
     Indication: Product used for unknown indication
     Route: 065
     Dates: start: 20240424

REACTIONS (5)
  - Skin lesion [Unknown]
  - Ocular hyperaemia [Unknown]
  - Rash [Unknown]
  - Dyspnoea [Unknown]
  - Dizziness [Unknown]
